FAERS Safety Report 9988038 (Version 2)
Quarter: 2014Q2

REPORT INFORMATION
  Report Type: Spontaneous
  Country: ZA (occurrence: ZA)
  Receive Date: 20140308
  Receipt Date: 20140507
  Transmission Date: 20141212
  Serious: Yes (Death, Other)
  Sender: FDA-Public Use
  Company Number: ZA-ROCHE-1358246

PATIENT
  Age: 66 Year
  Sex: Male

DRUGS (5)
  1. MABTHERA [Suspect]
     Indication: DIFFUSE LARGE B-CELL LYMPHOMA
     Route: 065
  2. CYCLOPHOSPHAMID [Concomitant]
     Indication: DIFFUSE LARGE B-CELL LYMPHOMA
     Dosage: LAST CYCLE ON 10 JAN
     Route: 065
  3. PREDNISOLONE [Concomitant]
     Indication: DIFFUSE LARGE B-CELL LYMPHOMA
     Dosage: LAST CYCLE ON 10 JAN
     Route: 065
  4. VINCRISTINE [Concomitant]
     Indication: DIFFUSE LARGE B-CELL LYMPHOMA
     Dosage: LAST CYCLE ON 10 JAN
     Route: 065
  5. DOXORUBICIN [Concomitant]
     Indication: DIFFUSE LARGE B-CELL LYMPHOMA
     Dosage: LAST CYCLE ON 10 JAN
     Route: 065

REACTIONS (3)
  - Disease progression [Fatal]
  - Central nervous system lymphoma [Unknown]
  - Nervous system disorder [Unknown]
